FAERS Safety Report 21100088 (Version 3)
Quarter: 2022Q3

REPORT INFORMATION
  Report Type: Spontaneous
  Country: US (occurrence: US)
  Receive Date: 20220719
  Receipt Date: 20220831
  Transmission Date: 20221027
  Serious: Yes (Other)
  Sender: FDA-Public Use
  Company Number: US-GLAXOSMITHKLINE-USCH2022AMR024657

PATIENT

DRUGS (5)
  1. FLONASE [Suspect]
     Active Substance: FLUTICASONE PROPIONATE
     Indication: Product used for unknown indication
     Dosage: UNK
     Dates: start: 202104
  2. MUPIROCIN [Suspect]
     Active Substance: MUPIROCIN
     Indication: Bacterial infection
     Dosage: UNK
     Dates: start: 202104
  3. PFIZER-BIONTECH COVID-19 VACCINE [Suspect]
     Active Substance: TOZINAMERAN
     Indication: COVID-19 immunisation
     Dosage: UNK
     Dates: start: 20210331
  4. METHYLPREDNISOLONE [Suspect]
     Active Substance: METHYLPREDNISOLONE
     Indication: Product used for unknown indication
     Dosage: UNK
     Dates: start: 202104
  5. LORATADINE [Suspect]
     Active Substance: LORATADINE
     Indication: Product used for unknown indication
     Dosage: UNK
     Dates: start: 202104

REACTIONS (30)
  - Neuropathy peripheral [Recovering/Resolving]
  - Bell^s palsy [Not Recovered/Not Resolved]
  - Abdominal pain upper [Recovered/Resolved]
  - Dyspepsia [Recovered/Resolved]
  - Constipation [Unknown]
  - Irritable bowel syndrome [Recovered/Resolved]
  - Abdominal distension [Recovered/Resolved]
  - Epistaxis [Unknown]
  - Dysphagia [Unknown]
  - Headache [Unknown]
  - Paraesthesia [Unknown]
  - Feeling abnormal [Unknown]
  - Pruritus [Unknown]
  - Blister [Unknown]
  - Angular cheilitis [Recovered/Resolved]
  - Fatigue [Unknown]
  - Myalgia [Unknown]
  - Tinnitus [Unknown]
  - Immune system disorder [Unknown]
  - Pain in extremity [Unknown]
  - Bone disorder [Unknown]
  - Pallor [Unknown]
  - Muscle tightness [Unknown]
  - Lip swelling [Unknown]
  - Lip pain [Unknown]
  - Dyspnoea [Unknown]
  - Pharyngeal swelling [Unknown]
  - Pollakiuria [Unknown]
  - Urinary tract pain [Unknown]
  - Nausea [Unknown]

NARRATIVE: CASE EVENT DATE: 20210401
